FAERS Safety Report 19291899 (Version 2)
Quarter: 2021Q2

REPORT INFORMATION
  Report Type: Spontaneous
  Country: JP (occurrence: JP)
  Receive Date: 20210524
  Receipt Date: 20210531
  Transmission Date: 20210717
  Serious: No
  Sender: FDA-Public Use
  Company Number: JP-TAKEDA-2021TJP024860AA

PATIENT
  Age: 30 Year
  Sex: Female

DRUGS (5)
  1. ENTYVIO [Suspect]
     Active Substance: VEDOLIZUMAB
     Indication: COLITIS ULCERATIVE
     Dosage: 300 MILLIGRAM
     Route: 041
     Dates: start: 20210302
  2. ASACOL [Concomitant]
     Active Substance: MESALAMINE
     Dosage: 5 DOSAGE FORM
     Route: 065
  3. SALAZOPYRIN [Concomitant]
     Active Substance: SULFASALAZINE
     Dosage: 8 DOSAGE FORM
     Route: 065
  4. INCREMIN [FERRIC PYROPHOSPHATE] [Concomitant]
     Active Substance: FERRIC PYROPHOSPHATE
     Dosage: 16 MILLILITER
     Route: 065
  5. FOLIAMIN [Concomitant]
     Active Substance: FOLIC ACID
     Dosage: 10 MILLIGRAM
     Route: 065

REACTIONS (1)
  - Intermenstrual bleeding [Unknown]
